FAERS Safety Report 8105628-3 (Version None)
Quarter: 2012Q1

REPORT INFORMATION
  Report Type: 
  Country: None (occurrence: None)
  Receive Date: 20120201
  Receipt Date: 20120119
  Transmission Date: 20120608
  Serious: Yes (Hospitalization, Disabling, Other)
  Sender: FDA-Public Use
  Company Number: US-ELI_LILLY_AND_COMPANY-US201004001299

PATIENT
  Sex: Female

DRUGS (22)
  1. FORTEO [Suspect]
     Dosage: 20 UG, QD
     Route: 065
  2. FORTEO [Suspect]
     Dosage: 20 UG, DAILY (1/D)
  3. FORTEO [Suspect]
     Dosage: 20 UG, QD
     Route: 065
  4. PLAVIX [Concomitant]
     Dosage: 75 MG, QD
  5. TYLENOL (CAPLET) [Concomitant]
     Indication: BACK PAIN
     Dosage: UNK, PRN
  6. FORTEO [Suspect]
     Dosage: 20 UG, QD
     Route: 065
     Dates: start: 20110120
  7. ANALGESICS [Concomitant]
     Indication: PAIN
     Route: 062
  8. BENAZEPRIL HYDROCHLORIDE [Concomitant]
     Dosage: 40 MG, QD
  9. FORTEO [Suspect]
     Dosage: 20 UG, DAILY (1/D)
     Route: 065
     Dates: end: 20101214
  10. ZANTAC [Concomitant]
     Dosage: 150 MG, EACH EVENING
  11. CARDURA [Concomitant]
     Dosage: 8 MG, QD
  12. LASIX [Concomitant]
     Dosage: 40 MG, BID
  13. MULTI-VITAMIN [Concomitant]
     Dosage: UNK, DAILY (1/D)
  14. LEVOTHYROXINE SODIUM [Concomitant]
     Dosage: 50 UG, QD
  15. FORTEO [Suspect]
     Indication: OSTEOPOROSIS
     Dosage: 20 UG, DAILY (1/D)
     Route: 065
  16. FORTEO [Suspect]
     Dosage: 20 UG, QD
     Route: 065
  17. FORTEO [Suspect]
     Dosage: 20 UG, QD
     Dates: end: 20120118
  18. DARVOCET [Concomitant]
  19. SYNTHROID [Concomitant]
     Indication: THYROID DISORDER
     Dosage: 50 UG, DAILY (1/D)
  20. CALCIUM W/VITAMIN D NOS [Concomitant]
     Dosage: 1200 MG, 2/D
  21. ZANTAC [Concomitant]
     Dosage: 150 MG, EACH MORNING
  22. AMLODIPINE [Concomitant]
     Dosage: 5 MG, QD

REACTIONS (18)
  - NERVE INJURY [None]
  - THROAT IRRITATION [None]
  - FALL [None]
  - HUMERUS FRACTURE [None]
  - IMPAIRED HEALING [None]
  - VISUAL ACUITY REDUCED [None]
  - UPPER LIMB FRACTURE [None]
  - MUSCULOSKELETAL DISORDER [None]
  - PAIN [None]
  - FRACTURE NONUNION [None]
  - BACK PAIN [None]
  - PAIN IN EXTREMITY [None]
  - DIZZINESS [None]
  - POSTOPERATIVE WOUND COMPLICATION [None]
  - DEVICE DISLOCATION [None]
  - HYPERTENSION [None]
  - HYPOAESTHESIA [None]
  - FEAR [None]
